FAERS Safety Report 20825241 (Version 1)
Quarter: 2022Q2

REPORT INFORMATION
  Report Type: Report from Study
  Country: US (occurrence: US)
  Receive Date: 20220513
  Receipt Date: 20220513
  Transmission Date: 20220721
  Serious: Yes (Other)
  Sender: FDA-Public Use
  Company Number: US-BIOVITRUM-2021US10621

PATIENT
  Age: 50 Year
  Sex: Male

DRUGS (4)
  1. KINERET [Suspect]
     Active Substance: ANAKINRA
     Indication: Monoclonal gammopathy
     Route: 058
     Dates: start: 20190423
  2. KINERET [Suspect]
     Active Substance: ANAKINRA
     Route: 058
     Dates: start: 20190418
  3. KINERET [Suspect]
     Active Substance: ANAKINRA
     Route: 058
     Dates: start: 20190418
  4. RITUXAN [Suspect]
     Active Substance: RITUXIMAB

REACTIONS (8)
  - Atrial fibrillation [Unknown]
  - Protein total increased [Unknown]
  - Monoclonal immunoglobulin increased [Unknown]
  - Laboratory test abnormal [Unknown]
  - White blood cell count abnormal [Unknown]
  - Red blood cell count decreased [Unknown]
  - Bronchitis [Unknown]
  - Off label use [Not Recovered/Not Resolved]

NARRATIVE: CASE EVENT DATE: 20190418
